FAERS Safety Report 22193353 (Version 1)
Quarter: 2023Q2

REPORT INFORMATION
  Report Type: Spontaneous
  Country: US (occurrence: US)
  Receive Date: 20230410
  Receipt Date: 20230410
  Transmission Date: 20230721
  Serious: Yes (Other)
  Sender: FDA-Public Use
  Company Number: US-Albireo AB-2023ALB000099

PATIENT
  Sex: Female
  Weight: 63.560 kg

DRUGS (5)
  1. BYLVAY [Suspect]
     Active Substance: ODEVIXIBAT
     Indication: Progressive familial intrahepatic cholestasis
     Route: 048
     Dates: start: 202212
  2. VITAMINS [Concomitant]
     Active Substance: VITAMINS
  3. JUNEL FE 1/20 [Concomitant]
     Active Substance: ETHINYL ESTRADIOL\NORETHINDRONE ACETATE
  4. URSODIOL [Concomitant]
     Active Substance: URSODIOL
  5. NAPROXEN [Concomitant]
     Active Substance: NAPROXEN

REACTIONS (2)
  - Back pain [Unknown]
  - Hepatic cirrhosis [Unknown]
